FAERS Safety Report 23740559 (Version 3)
Quarter: 2024Q2

REPORT INFORMATION
  Report Type: Report from Study
  Country: US (occurrence: US)
  Receive Date: 20240415
  Receipt Date: 20240614
  Transmission Date: 20240716
  Serious: Yes (Hospitalization, Other)
  Sender: FDA-Public Use
  Company Number: US-002147023-NVSC2024US019379

PATIENT
  Sex: Female

DRUGS (2)
  1. KESIMPTA [Suspect]
     Active Substance: OFATUMUMAB
     Indication: Product used for unknown indication
     Dosage: UNK
     Route: 065
  2. TYLENOL [Concomitant]
     Active Substance: ACETAMINOPHEN
     Indication: Product used for unknown indication
     Dosage: 2 DOSAGE FORM (1/2 HR BEFORE INJECTION)
     Route: 065

REACTIONS (8)
  - Bipolar disorder [Unknown]
  - Suicidal ideation [Unknown]
  - Feeling abnormal [Unknown]
  - Gait disturbance [Unknown]
  - Malaise [Unknown]
  - Brain fog [Unknown]
  - Influenza [Unknown]
  - Mental disorder [Unknown]
